FAERS Safety Report 6540898-4 (Version None)
Quarter: 2010Q1

REPORT INFORMATION
  Report Type: 
  Country: None (occurrence: None)
  Receive Date: 20100118
  Receipt Date: 20100113
  Transmission Date: 20100710
  Serious: Yes (Death)
  Sender: FDA-Public Use
  Company Number: PHHY2010JP01899

PATIENT
  Age: 97 Year
  Sex: Female

DRUGS (3)
  1. RASILEZ [Suspect]
     Indication: HYPERTENSION
     Dosage: 150 MG DAILY
     Route: 048
     Dates: start: 20091109
  2. BLOPRESS [Concomitant]
     Dosage: 4 MG, UNK
     Route: 048
  3. DIART [Concomitant]
     Dosage: 60 MG, UNK
     Route: 048

REACTIONS (1)
  - ARRHYTHMIA [None]
